FAERS Safety Report 20802486 (Version 1)
Quarter: 2022Q2

REPORT INFORMATION
  Report Type: Spontaneous
  Country: US (occurrence: None)
  Receive Date: 20220507
  Receipt Date: 20220507
  Transmission Date: 20220721
  Serious: Yes (Other)
  Sender: FDA-Public Use
  Company Number: None

PATIENT
  Age: 72 Year
  Sex: Female
  Weight: 52.65 kg

DRUGS (15)
  1. TYRVAYA [Suspect]
     Active Substance: VARENICLINE TARTRATE
     Indication: Dry eye
     Dosage: OTHER QUANTITY : 1 SPRAY(S)?FREQUENCY : TWICE A DAY?
     Route: 055
     Dates: start: 20220323, end: 20220418
  2. LEVOTHYROXINE [Concomitant]
     Active Substance: LEVOTHYROXINE
  3. SIMVASTATIN [Concomitant]
     Active Substance: SIMVASTATIN
  4. LINZESS [Concomitant]
     Active Substance: LINACLOTIDE
  5. EZETIMIBE [Concomitant]
     Active Substance: EZETIMIBE
  6. XIIDRA [Concomitant]
     Active Substance: LIFITEGRAST
  7. Regener-eye [Concomitant]
  8. VITAMINS [Concomitant]
     Active Substance: VITAMINS
  9. Omega3 [Concomitant]
  10. PROBIOTICS NOS [Concomitant]
     Active Substance: PROBIOTICS NOS
  11. Flax oil [Concomitant]
  12. FLAX SEED [Concomitant]
     Active Substance: FLAX SEED
  13. CHIA SEED [Concomitant]
  14. VITAMIN D3 [Concomitant]
     Active Substance: CHOLECALCIFEROL
  15. Calcium chew [Concomitant]

REACTIONS (3)
  - Photophobia [None]
  - Dry eye [None]
  - Impaired driving ability [None]

NARRATIVE: CASE EVENT DATE: 20220328
